FAERS Safety Report 25400086 (Version 1)
Quarter: 2025Q2

REPORT INFORMATION
  Report Type: Spontaneous
  Country: PL (occurrence: PL)
  Receive Date: 20250605
  Receipt Date: 20250605
  Transmission Date: 20250717
  Serious: Yes (Other)
  Sender: AMGEN
  Company Number: PL-AMGEN-POLSP2025106031

PATIENT
  Age: 64 Year
  Sex: Female

DRUGS (8)
  1. ARANESP [Suspect]
     Active Substance: DARBEPOETIN ALFA
     Indication: Product used for unknown indication
     Dosage: UNK, Q3WK
     Route: 058
     Dates: start: 20240705
  2. PEMBROLIZUMAB [Concomitant]
     Active Substance: PEMBROLIZUMAB
     Indication: Breast cancer metastatic
     Dosage: ON D1 IN COMBINATION WITH CHEMOTHERAPY, Q3WK
     Dates: start: 20240507
  3. PEMBROLIZUMAB [Concomitant]
     Active Substance: PEMBROLIZUMAB
     Dosage: ON D1 IN COMBINATION WITH CHEMOTHERAPY, Q3WK
  4. GEMCITABINE [Concomitant]
     Active Substance: GEMCITABINE
     Indication: Breast cancer metastatic
     Dosage: 1000 MILLIGRAM/SQ. METER, Q3WK
     Dates: start: 20240507
  5. GEMCITABINE [Concomitant]
     Active Substance: GEMCITABINE
     Dosage: 1000 MILLIGRAM/SQ. METER, Q3WK
  6. CARBOPLATIN [Concomitant]
     Active Substance: CARBOPLATIN
     Indication: Breast cancer metastatic
     Dosage: ON D1 AND D8, Q3WK
     Dates: start: 20240507
  7. CARBOPLATIN [Concomitant]
     Active Substance: CARBOPLATIN
     Dosage: ON D1 AND D8, Q3WK
  8. IRON [Concomitant]
     Active Substance: IRON
     Route: 040

REACTIONS (5)
  - General physical health deterioration [Unknown]
  - Pseudomonas test positive [Recovered/Resolved]
  - Pyrexia [Unknown]
  - Erythema [Unknown]
  - Dyspnoea [Unknown]
